FAERS Safety Report 5467044-2 (Version None)
Quarter: 2007Q3

REPORT INFORMATION
  Report Type: 
  Country: None (occurrence: None)
  Receive Date: 20070925
  Receipt Date: 20070921
  Transmission Date: 20080115
  Serious: Yes (Other)
  Sender: FDA-Public Use
  Company Number: B0486677A

PATIENT
  Age: 16 Year
  Sex: Female
  Weight: 50 kg

DRUGS (6)
  1. PAXIL [Suspect]
     Indication: PANIC DISORDER
     Route: 048
     Dates: start: 20070425, end: 20070516
  2. CHLORPROMAZINE [Concomitant]
     Dosage: 25MG PER DAY
     Dates: start: 20070518, end: 20070525
  3. DOGMATYL [Concomitant]
     Dosage: 100MG PER DAY
     Dates: start: 20070518, end: 20070601
  4. ROHYPNOL [Concomitant]
     Dosage: 1MG PER DAY
     Dates: start: 20070518
  5. RIZE [Concomitant]
     Dosage: 5MG PER DAY
     Dates: start: 20070525
  6. LEXOTAN [Concomitant]
     Dosage: 2MG PER DAY

REACTIONS (13)
  - ALTERED STATE OF CONSCIOUSNESS [None]
  - AMNESIA [None]
  - APATHY [None]
  - DELUSION [None]
  - DIZZINESS [None]
  - FEAR [None]
  - FEELING OF RELAXATION [None]
  - GALACTORRHOEA [None]
  - HALLUCINATION [None]
  - HYPERVENTILATION [None]
  - INTENTIONAL SELF-INJURY [None]
  - SOMNOLENCE [None]
  - UNEVALUABLE EVENT [None]
